FAERS Safety Report 5405165-0 (Version None)
Quarter: 2007Q3

REPORT INFORMATION
  Report Type: 
  Country: None (occurrence: None)
  Receive Date: 20070803
  Receipt Date: 20070725
  Transmission Date: 20080115
  Serious: Yes (Life-Threatening, Hospitalization)
  Sender: FDA-Public Use
  Company Number: JP-SANOFI-SYNTHELABO-A01200705860

PATIENT
  Sex: Male
  Weight: 53 kg

DRUGS (3)
  1. OXALIPLATIN [Suspect]
     Indication: RECTAL CANCER
     Route: 041
     Dates: start: 20070522, end: 20070522
  2. FLUOROURACIL [Suspect]
     Dosage: 600 MG/BODY=384.6 MG/M2 IN BOLUS THEN 3700 MG/BODY=2371.8 MG/M2 AS INFUSION
     Route: 042
     Dates: start: 20070522, end: 20070522
  3. ISOVORIN [Concomitant]
     Route: 041
     Dates: start: 20070522, end: 20070522

REACTIONS (3)
  - LOSS OF CONSCIOUSNESS [None]
  - NAUSEA [None]
  - VOMITING [None]
